FAERS Safety Report 5076385-2 (Version None)
Quarter: 2006Q3

REPORT INFORMATION
  Report Type: 
  Country: None (occurrence: None)
  Receive Date: 20060807
  Receipt Date: 20060801
  Transmission Date: 20061208
  Serious: Yes (Other)
  Sender: FDA-Public Use
  Company Number: 2006090105

PATIENT
  Sex: Male

DRUGS (1)
  1. LYRICA [Suspect]
     Indication: PAIN
     Dosage: 600 MG (1 D)
     Dates: start: 20051201

REACTIONS (12)
  - AMNESIA [None]
  - ARACHNOIDITIS [None]
  - CHILLS [None]
  - EPISTAXIS [None]
  - GASTROOESOPHAGEAL REFLUX DISEASE [None]
  - HAEMOPTYSIS [None]
  - HYPOAESTHESIA [None]
  - OEDEMA PERIPHERAL [None]
  - SKIN DISCOLOURATION [None]
  - THROAT IRRITATION [None]
  - TREMOR [None]
  - ULCER [None]
